FAERS Safety Report 15689301 (Version 1)
Quarter: 2018Q4

REPORT INFORMATION
  Report Type: Spontaneous
  Country: US (occurrence: US)
  Receive Date: 20181121
  Receipt Date: 20181121
  Transmission Date: 20190205
  Serious: No
  Sender: FDA-Public Use
  Company Number: None

PATIENT
  Age: 60 Year
  Sex: Female
  Weight: 72.57 kg

DRUGS (13)
  1. HALDOL [Suspect]
     Active Substance: HALOPERIDOL
     Indication: AGGRESSION
     Route: 048
     Dates: start: 197309, end: 201702
  2. GINKO BILOBA [Concomitant]
     Active Substance: GINKGO
  3. GRAPESEED [Concomitant]
  4. RISPERDAL [Suspect]
     Active Substance: RISPERIDONE
  5. MAGNESIUM [Concomitant]
     Active Substance: MAGNESIUM
  6. MELATONIN [Concomitant]
     Active Substance: MELATONIN
  7. NAVANE [Suspect]
     Active Substance: THIOTHIXENE
  8. HALDOL [Suspect]
     Active Substance: HALOPERIDOL
     Indication: PSYCHOTIC DISORDER
     Route: 048
     Dates: start: 197309, end: 201702
  9. PERPHENAZINE. [Suspect]
     Active Substance: PERPHENAZINE
  10. GABAPENTIN. [Concomitant]
     Active Substance: GABAPENTIN
  11. STELAZINE [Suspect]
     Active Substance: TRIFLUOPERAZINE HYDROCHLORIDE
  12. ABILIFY [Suspect]
     Active Substance: ARIPIPRAZOLE
  13. RESCUE INHALER [Concomitant]

REACTIONS (1)
  - Dyskinesia [None]

NARRATIVE: CASE EVENT DATE: 2016
